FAERS Safety Report 7529376-3 (Version None)
Quarter: 2011Q2

REPORT INFORMATION
  Report Type: 
  Country: None (occurrence: None)
  Receive Date: 20110607
  Receipt Date: 20110531
  Transmission Date: 20111010
  Serious: Yes (Hospitalization)
  Sender: FDA-Public Use
  Company Number: US-SANOFI-AVENTIS-2011SA034400

PATIENT
  Age: 62 Year
  Sex: Male

DRUGS (10)
  1. COZAAR [Concomitant]
  2. ASPIRIN [Concomitant]
  3. SIMVASTATIN [Concomitant]
  4. APIDRA [Suspect]
     Indication: TYPE 2 DIABETES MELLITUS
     Dosage: DOSE:4 UNIT(S)
     Route: 058
     Dates: start: 20110401
  5. LANTUS [Suspect]
     Indication: TYPE 2 DIABETES MELLITUS
     Dosage: DOSE:10 UNIT(S)
     Route: 058
     Dates: start: 20090701
  6. SOLOSTAR [Suspect]
     Indication: TYPE 2 DIABETES MELLITUS
     Dates: start: 20110401
  7. OMEPRAZOLE [Concomitant]
  8. LEVEMIR [Concomitant]
     Dates: start: 20110401
  9. NOVOLOG [Concomitant]
     Dates: start: 20090701
  10. CENTRUM SILVER [Concomitant]

REACTIONS (3)
  - HEART RATE INCREASED [None]
  - DYSPNOEA [None]
  - HYPERHIDROSIS [None]
